FAERS Safety Report 5082256-8 (Version None)
Quarter: 2006Q3

REPORT INFORMATION
  Report Type: 
  Country: None (occurrence: None)
  Receive Date: 20060814
  Receipt Date: 20060801
  Transmission Date: 20061208
  Serious: Yes (Death, Hospitalization)
  Sender: FDA-Public Use
  Company Number: HQWYE634701AUG06

PATIENT
  Age: 46 Year
  Sex: Male

DRUGS (1)
  1. EFFEXOR [Suspect]
     Indication: STRESS

REACTIONS (9)
  - ABNORMAL BEHAVIOUR [None]
  - AGITATION [None]
  - CARDIAC FAILURE CONGESTIVE [None]
  - CARDIOMYOPATHY [None]
  - GUN SHOT WOUND [None]
  - HOMICIDAL IDEATION [None]
  - PNEUMONIA [None]
  - SUICIDAL IDEATION [None]
  - VIRAL MYOCARDITIS [None]
